FAERS Safety Report 10956340 (Version 1)
Quarter: 2015Q1

REPORT INFORMATION
  Report Type: Spontaneous
  Country: US (occurrence: None)
  Receive Date: 20150325
  Receipt Date: 20150325
  Transmission Date: 20150721
  Serious: Yes (Death, Life-Threatening)
  Sender: FDA-Public Use
  Company Number: None

PATIENT
  Age: 95 Year
  Sex: Female
  Weight: 56.25 kg

DRUGS (2)
  1. DRONEDERONE [Suspect]
     Active Substance: DRONEDARONE
     Indication: THROMBOSIS PROPHYLAXIS
     Route: 048
  2. DRONEDERONE [Suspect]
     Active Substance: DRONEDARONE
     Indication: ATRIAL FIBRILLATION
     Route: 048

REACTIONS (3)
  - Femur fracture [None]
  - Pulmonary fibrosis [None]
  - Fall [None]
